FAERS Safety Report 5023391-X (Version None)
Quarter: 2006Q2

REPORT INFORMATION
  Report Type: 
  Country: None (occurrence: None)
  Receive Date: 20060606
  Receipt Date: 20060601
  Transmission Date: 20061013
  Serious: Yes (Life-Threatening)
  Sender: FDA-Public Use
  Company Number: 200610251BFR

PATIENT
  Sex: Male
  Weight: 75 kg

DRUGS (3)
  1. CIPROFLOXACIN HCL [Suspect]
     Dosage: 3 G, QD, ORAL
     Route: 048
     Dates: start: 20060130, end: 20060201
  2. ALLOPURINOL [Concomitant]
  3. ALDACTAZIDE [Concomitant]

REACTIONS (3)
  - DRUG DISPENSING ERROR [None]
  - HYPERKALAEMIA [None]
  - RENAL FAILURE ACUTE [None]
